FAERS Safety Report 9734538 (Version 1)
Quarter: 2013Q4

REPORT INFORMATION
  Report Type: Spontaneous
  Country: US (occurrence: US)
  Receive Date: 20131206
  Receipt Date: 20131206
  Transmission Date: 20140711
  Serious: No
  Sender: FDA-Public Use
  Company Number: US-BIOGENIDEC-2013BI115704

PATIENT
  Age: 37 Year
  Sex: Female

DRUGS (1)
  1. AVONEX [Suspect]
     Indication: MULTIPLE SCLEROSIS
     Route: 030
     Dates: start: 20020514

REACTIONS (3)
  - Injection site necrosis [Recovered/Resolved]
  - Hepatic enzyme abnormal [Recovered/Resolved]
  - Malaise [Recovered/Resolved with Sequelae]
